FAERS Safety Report 6437269-8 (Version None)
Quarter: 2009Q4

REPORT INFORMATION
  Report Type: 
  Country: None (occurrence: None)
  Receive Date: 20091112
  Receipt Date: 20091105
  Transmission Date: 20100525
  Serious: Yes (Death, Hospitalization)
  Sender: FDA-Public Use
  Company Number: FR-BRISTOL-MYERS SQUIBB COMPANY-14847768

PATIENT
  Age: 92 Year
  Sex: Female

DRUGS (11)
  1. AXEPIM INJ [Suspect]
     Dosage: 2 GRAMS THE FIRT DAY AND THEN 2GX2/DAY
     Route: 042
     Dates: start: 20090518, end: 20090521
  2. AMIKLIN INJ [Suspect]
     Route: 042
     Dates: start: 20090518
  3. LASILIX [Suspect]
     Dosage: 20 TO 40MG PER DAY THEN 80MG/DAY ON 19 AND 20-MAY-2009
     Route: 042
     Dates: start: 20090507, end: 20090521
  4. DIAMOX SRC [Concomitant]
     Dates: start: 20090514, end: 20090521
  5. ARIXTRA [Concomitant]
     Route: 058
     Dates: start: 20090507, end: 20090522
  6. SOLU-MEDROL [Concomitant]
     Dosage: DOSE DECREASED TO 60 MG
     Route: 042
     Dates: start: 20090515, end: 20090524
  7. MUCOMYST [Concomitant]
     Route: 048
     Dates: start: 20090515, end: 20090521
  8. PULMICORT [Concomitant]
     Route: 055
     Dates: start: 20090513
  9. NOVORAPID [Concomitant]
     Route: 058
     Dates: start: 20090401
  10. ATROVENT [Concomitant]
     Route: 055
     Dates: start: 20090513
  11. BRICANYL [Concomitant]
     Dosage: 6DF-6 ADMINISTRATION
     Route: 055
     Dates: start: 20090513

REACTIONS (3)
  - ENCEPHALOPATHY [None]
  - MYOCLONUS [None]
  - RENAL IMPAIRMENT [None]
